FAERS Safety Report 17424573 (Version 1)
Quarter: 2020Q1

REPORT INFORMATION
  Report Type: Spontaneous
  Country: FR (occurrence: FR)
  Receive Date: 20200217
  Receipt Date: 20200217
  Transmission Date: 20200409
  Serious: Yes (Other)
  Sender: FDA-Public Use
  Company Number: FR-SUN PHARMACEUTICAL INDUSTRIES LTD-2020RR-237011

PATIENT
  Age: 46 Year
  Sex: Male

DRUGS (9)
  1. PREGABALIN KRKA [Suspect]
     Active Substance: PREGABALIN
     Indication: NEUROGENIC BLADDER
     Dosage: 200 MG, DAILY (25MG 8 TIMES PER DAY DAILY)
     Route: 048
  2. UROREC [Concomitant]
     Active Substance: SILODOSIN
     Indication: PRODUCT USED FOR UNKNOWN INDICATION
     Dosage: UNK
     Route: 065
  3. LYRICA [Suspect]
     Active Substance: PREGABALIN
     Indication: NEUROPATHY PERIPHERAL
     Dosage: 25 MG, 4X/DAY
     Route: 065
     Dates: start: 2014
  4. PREGABALIN KRKA [Suspect]
     Active Substance: PREGABALIN
     Indication: PAIN
     Dosage: 25 MG, 4X/DAY
     Route: 048
  5. PREGABALIN. [Suspect]
     Active Substance: PREGABALIN
     Indication: NEURALGIA
     Dosage: 200 MG, DAILY (25MG 8 TIMES PER DAY DAILY)
     Route: 048
  6. PERMEXON [Concomitant]
     Indication: PRODUCT USED FOR UNKNOWN INDICATION
     Dosage: UNK
     Route: 065
  7. PREGABALIN. [Suspect]
     Active Substance: PREGABALIN
     Indication: NEUROPATHY PERIPHERAL
     Dosage: 25 MG, 4X/DAY
     Route: 048
     Dates: start: 2014
  8. LYRICA [Suspect]
     Active Substance: PREGABALIN
     Indication: NEURALGIA
     Dosage: 200 MG, DAILY (25MG 8 TIMES PER DAY DAILY)
     Route: 065
  9. ALPRAZOLAM. [Concomitant]
     Active Substance: ALPRAZOLAM
     Indication: PRODUCT USED FOR UNKNOWN INDICATION
     Dosage: UNK
     Route: 065

REACTIONS (17)
  - Generalised anxiety disorder [Unknown]
  - Diplopia [Unknown]
  - Drug ineffective [Unknown]
  - Fear [Unknown]
  - Speech disorder [Unknown]
  - Hypertonic bladder [Unknown]
  - Nasal dryness [Unknown]
  - Memory impairment [Unknown]
  - Burning sensation [Unknown]
  - Insomnia [Unknown]
  - Formication [Unknown]
  - Suicidal ideation [Recovered/Resolved]
  - Drug intolerance [Unknown]
  - Sedation [Unknown]
  - Off label use [Unknown]
  - Product use issue [Unknown]
  - Confusional state [Unknown]

NARRATIVE: CASE EVENT DATE: 2014
